FAERS Safety Report 21327298 (Version 1)
Quarter: 2022Q3

REPORT INFORMATION
  Report Type: Spontaneous
  Country: US (occurrence: US)
  Receive Date: 20220913
  Receipt Date: 20220913
  Transmission Date: 20221027
  Serious: No
  Sender: FDA-Public Use
  Company Number: US-AMGEN-USASP2022154851

PATIENT
  Age: 37 Year
  Sex: Female

DRUGS (2)
  1. IVABRADINE [Suspect]
     Active Substance: IVABRADINE
     Indication: Postural orthostatic tachycardia syndrome
     Dosage: 5 MILLIGRAM
     Route: 065
  2. IVABRADINE [Suspect]
     Active Substance: IVABRADINE
     Indication: Off label use

REACTIONS (2)
  - Drug effective for unapproved indication [Unknown]
  - Off label use [Unknown]
